FAERS Safety Report 16918621 (Version 1)
Quarter: 2019Q4

REPORT INFORMATION
  Report Type: Spontaneous
  Country: KW (occurrence: KW)
  Receive Date: 20191015
  Receipt Date: 20191015
  Transmission Date: 20200122
  Serious: Yes (Other)
  Sender: FDA-Public Use
  Company Number: KW-LUPIN PHARMACEUTICALS INC.-2019-06529

PATIENT
  Age: 8 Year
  Sex: Male
  Weight: 24 kg

DRUGS (21)
  1. ARIPIPRAZOLE. [Suspect]
     Active Substance: ARIPIPRAZOLE
     Indication: BEHAVIOUR DISORDER
  2. VALPROIC ACID. [Concomitant]
     Active Substance: VALPROIC ACID
     Indication: AUTISM SPECTRUM DISORDER
  3. SERTRALINE [Suspect]
     Active Substance: SERTRALINE HYDROCHLORIDE
     Indication: AUTISM SPECTRUM DISORDER
     Dosage: 20 MILLIGRAM, QD
     Route: 065
  4. CLONIDINE. [Suspect]
     Active Substance: CLONIDINE
     Indication: INTELLECTUAL DISABILITY
  5. ARIPIPRAZOLE. [Suspect]
     Active Substance: ARIPIPRAZOLE
     Indication: INTELLECTUAL DISABILITY
  6. CLONIDINE. [Suspect]
     Active Substance: CLONIDINE
     Indication: AUTISM SPECTRUM DISORDER
     Dosage: 300 MICROGRAM, QD
     Route: 065
  7. RISPERIDONE. [Suspect]
     Active Substance: RISPERIDONE
     Indication: AUTISM SPECTRUM DISORDER
     Dosage: 2 MILLIGRAM, QD
     Route: 065
  8. SERTRALINE [Suspect]
     Active Substance: SERTRALINE HYDROCHLORIDE
     Indication: BEHAVIOUR DISORDER
  9. NALTREXONE [Suspect]
     Active Substance: NALTREXONE
     Indication: INTELLECTUAL DISABILITY
  10. SERTRALINE [Suspect]
     Active Substance: SERTRALINE HYDROCHLORIDE
     Indication: INTELLECTUAL DISABILITY
  11. NALTREXONE [Suspect]
     Active Substance: NALTREXONE
     Indication: AUTISM SPECTRUM DISORDER
     Dosage: 12.5 MILLIGRAM, QD
     Route: 065
  12. NALTREXONE [Suspect]
     Active Substance: NALTREXONE
     Indication: BEHAVIOUR DISORDER
  13. RISPERIDONE. [Suspect]
     Active Substance: RISPERIDONE
     Indication: BEHAVIOUR DISORDER
  14. VALPROIC ACID. [Concomitant]
     Active Substance: VALPROIC ACID
     Indication: BEHAVIOUR DISORDER
  15. SERTRALINE [Suspect]
     Active Substance: SERTRALINE HYDROCHLORIDE
     Indication: EPILEPSY
  16. CLONIDINE. [Suspect]
     Active Substance: CLONIDINE
     Indication: EPILEPSY
  17. ARIPIPRAZOLE. [Suspect]
     Active Substance: ARIPIPRAZOLE
     Indication: AUTISM SPECTRUM DISORDER
     Dosage: 7.5 MILLIGRAM, QD
     Route: 065
  18. RISPERIDONE. [Suspect]
     Active Substance: RISPERIDONE
     Indication: INTELLECTUAL DISABILITY
  19. NALTREXONE [Suspect]
     Active Substance: NALTREXONE
     Indication: EPILEPSY
  20. VALPROIC ACID. [Concomitant]
     Active Substance: VALPROIC ACID
     Indication: INTELLECTUAL DISABILITY
     Dosage: 25 MILLIGRAM/KILOGRAM, QD
     Route: 065
  21. CLONIDINE. [Suspect]
     Active Substance: CLONIDINE
     Indication: BEHAVIOUR DISORDER

REACTIONS (8)
  - Agitation [Unknown]
  - Treatment failure [Unknown]
  - Tremor [Unknown]
  - Paradoxical drug reaction [Unknown]
  - Presyncope [Unknown]
  - Transaminases increased [Unknown]
  - Weight increased [Unknown]
  - Hyperprolactinaemia [Unknown]
